FAERS Safety Report 12698752 (Version 1)
Quarter: 2016Q3

REPORT INFORMATION
  Report Type: Spontaneous
  Country: BR (occurrence: BR)
  Receive Date: 20160830
  Receipt Date: 20160830
  Transmission Date: 20161109
  Serious: Yes (Other)
  Sender: FDA-Public Use
  Company Number: BR-PFIZER INC-2016352371

PATIENT
  Age: 28 Year
  Sex: Female

DRUGS (2)
  1. DEPO-PROVERA [Suspect]
     Active Substance: MEDROXYPROGESTERONE ACETATE
     Indication: MENSTRUAL DISORDER
     Dosage: 150 MG, TOOK ONLY ONCE
     Dates: start: 201510, end: 201510
  2. DEPO-PROVERA [Suspect]
     Active Substance: MEDROXYPROGESTERONE ACETATE
     Indication: ENDOMETRIOSIS

REACTIONS (6)
  - Ovarian cyst [Unknown]
  - Alopecia [Recovered/Resolved]
  - Drug ineffective for unapproved indication [Recovered/Resolved]
  - Dysmenorrhoea [Recovered/Resolved]
  - Asthenia [Recovered/Resolved]
  - Fear [Recovered/Resolved]

NARRATIVE: CASE EVENT DATE: 201510
